FAERS Safety Report 10437427 (Version 1)
Quarter: 2014Q3

REPORT INFORMATION
  Report Type: Spontaneous
  Country: US (occurrence: US)
  Receive Date: 20140908
  Receipt Date: 20140908
  Transmission Date: 20150326
  Serious: Yes (Hospitalization)
  Sender: FDA-Public Use
  Company Number: US-BRISTOL-MYERS SQUIBB COMPANY-20953444

PATIENT
  Age: 16 Year
  Sex: Female

DRUGS (3)
  1. ZOLOFT [Suspect]
     Active Substance: SERTRALINE HYDROCHLORIDE
  2. ABILIFY [Suspect]
     Active Substance: ARIPIPRAZOLE
     Dosage: DOSE REDUCED TO 2.5 MG THEN DISCONTNUED
  3. COGENTIN [Suspect]
     Active Substance: BENZTROPINE MESYLATE

REACTIONS (2)
  - Adverse event [Unknown]
  - Hallucination, auditory [Recovered/Resolved]
